FAERS Safety Report 20656150 (Version 2)
Quarter: 2022Q2

REPORT INFORMATION
  Report Type: Spontaneous
  Country: US (occurrence: US)
  Receive Date: 20220330
  Receipt Date: 20220424
  Transmission Date: 20220721
  Serious: No
  Sender: FDA-Public Use
  Company Number: US-JNJFOC-20220342173

PATIENT
  Age: 80 Year
  Sex: Male
  Weight: 96.248 kg

DRUGS (5)
  1. XARELTO [Suspect]
     Active Substance: RIVAROXABAN
     Indication: Deep vein thrombosis
     Route: 048
     Dates: start: 20220303
  2. XARELTO [Suspect]
     Active Substance: RIVAROXABAN
     Route: 048
  3. CIPROFLOXACIN [Concomitant]
     Active Substance: CIPROFLOXACIN
     Indication: Urinary tract infection
     Route: 065
     Dates: start: 202202, end: 20220330
  4. RIVASTIGMINE [Concomitant]
     Active Substance: RIVASTIGMINE
     Indication: Concussion
     Route: 061
  5. TAMSULOSIN [Concomitant]
     Active Substance: TAMSULOSIN
     Indication: Micturition disorder
     Dosage: CONTINUING
     Route: 065
     Dates: start: 202201

REACTIONS (1)
  - Inappropriate schedule of product administration [Unknown]
